FAERS Safety Report 7317189-7 (Version None)
Quarter: 2011Q1

REPORT INFORMATION
  Report Type: 
  Country: None (occurrence: None)
  Receive Date: 20110226
  Receipt Date: 20101117
  Transmission Date: 20110831
  Serious: No
  Sender: FDA-Public Use
  Company Number: US-ALLERGAN-1012814US

PATIENT
  Age: 68 Year
  Sex: Female

DRUGS (4)
  1. BOTOXA? [Suspect]
     Indication: TORTICOLLIS
     Dosage: UNK
     Route: 030
     Dates: start: 20100916, end: 20100916
  2. SYNTHROID [Suspect]
     Indication: HYPOTHYROIDISM
  3. METFORMIN HCL [Concomitant]
     Indication: DIABETES MELLITUS
     Dosage: UNK
  4. CYMBALTA [Concomitant]
     Indication: PAIN
     Dosage: 60 MG, QD
     Route: 048
     Dates: start: 20100801, end: 20100916

REACTIONS (7)
  - PAIN OF SKIN [None]
  - HYPOAESTHESIA [None]
  - RASH ERYTHEMATOUS [None]
  - DYSPHAGIA [None]
  - EYELID PTOSIS [None]
  - SKIN BURNING SENSATION [None]
  - RASH GENERALISED [None]
